FAERS Safety Report 11396066 (Version 1)
Quarter: 2015Q3

REPORT INFORMATION
  Report Type: Spontaneous
  Country: US (occurrence: US)
  Receive Date: 20150819
  Receipt Date: 20150819
  Transmission Date: 20151125
  Serious: No
  Sender: FDA-Public Use
  Company Number: US-JNJFOC-20150706268

PATIENT
  Age: 33 Year
  Sex: Female

DRUGS (4)
  1. LUPRON DEPOT [Suspect]
     Active Substance: LEUPROLIDE ACETATE
     Indication: ENDOMETRIOSIS
     Route: 065
     Dates: start: 20150527
  2. NORETHINDRONE ACETATE. [Suspect]
     Active Substance: NORETHINDRONE ACETATE
     Indication: PRODUCT USED FOR UNKNOWN INDICATION
     Route: 065
     Dates: start: 20150527
  3. ULTRAM [Suspect]
     Active Substance: TRAMADOL HYDROCHLORIDE
     Indication: PELVIC PAIN
     Route: 065
     Dates: start: 20150528
  4. BACLOFEN. [Suspect]
     Active Substance: BACLOFEN
     Indication: PELVIC PAIN
     Route: 065

REACTIONS (8)
  - Hot flush [Unknown]
  - Migraine [Unknown]
  - Night sweats [Unknown]
  - Weight increased [Unknown]
  - Libido decreased [Unknown]
  - Fatigue [Unknown]
  - Mood altered [Unknown]
  - Herpes zoster [Unknown]

NARRATIVE: CASE EVENT DATE: 20150531
